FAERS Safety Report 7264686-9 (Version None)
Quarter: 2011Q1

REPORT INFORMATION
  Report Type: 
  Country: None (occurrence: None)
  Receive Date: 20110131
  Receipt Date: 20110118
  Transmission Date: 20110831
  Serious: Yes (Other)
  Sender: FDA-Public Use
  Company Number: US-PAR PHARMACEUTICAL, INC-2011SCPR002652

PATIENT
  Age: 16 Year
  Sex: Male

DRUGS (5)
  1. FLUOXETINE [Suspect]
     Indication: BIPOLAR DISORDER
     Dosage: 30 MG, DAILY
     Route: 065
  2. ARIPIPRAZOLE [Suspect]
     Indication: BIPOLAR DISORDER
     Dosage: 5 MG, DAILY
     Route: 065
  3. LITHIUM [Suspect]
     Indication: BIPOLAR DISORDER
     Dosage: 450 MG, BID
     Route: 065
  4. ARIPIPRAZOLE [Suspect]
     Dosage: 10 MG, DAILY
     Route: 065
  5. CAFFEINE [Suspect]
     Indication: PRODUCT USED FOR UNKNOWN INDICATION
     Dosage: APPROXIMATE 1.6 G
     Route: 048

REACTIONS (5)
  - RHABDOMYOLYSIS [None]
  - DRUG INTERACTION [None]
  - DRUG RASH WITH EOSINOPHILIA AND SYSTEMIC SYMPTOMS [None]
  - HERPES SIMPLEX SEROLOGY POSITIVE [None]
  - EPSTEIN-BARR VIRUS TEST POSITIVE [None]
